FAERS Safety Report 25805246 (Version 2)
Quarter: 2025Q4

REPORT INFORMATION
  Report Type: Spontaneous
  Country: US (occurrence: US)
  Receive Date: 20250916
  Receipt Date: 20251009
  Transmission Date: 20260117
  Serious: No
  Sender: ROCHE
  Company Number: US-ROCHE-10000385257

PATIENT
  Sex: Female

DRUGS (5)
  1. XOLAIR [Suspect]
     Active Substance: OMALIZUMAB
     Indication: Idiopathic urticaria
     Route: 058
  2. ESTRADIOL [Concomitant]
     Active Substance: ESTRADIOL
  3. LISINOPRIL [Concomitant]
     Active Substance: LISINOPRIL
  4. LORATADINE [Concomitant]
     Active Substance: LORATADINE
  5. PRAVASTATIN [Concomitant]
     Active Substance: PRAVASTATIN

REACTIONS (3)
  - Pruritus [Recovered/Resolved]
  - Lymphadenopathy [Recovered/Resolved]
  - Furuncle [Recovered/Resolved]
